FAERS Safety Report 6501878-8 (Version None)
Quarter: 2009Q4

REPORT INFORMATION
  Report Type: 
  Country: None (occurrence: None)
  Receive Date: 20091216
  Receipt Date: 20091207
  Transmission Date: 20100525
  Serious: Yes (Death, Life-Threatening, Hospitalization)
  Sender: FDA-Public Use
  Company Number: US-ABBOTT-09P-163-0503389-00

PATIENT
  Sex: Female
  Weight: 45.4 kg

DRUGS (3)
  1. HUMIRA [Suspect]
     Indication: PSORIASIS
     Route: 058
     Dates: start: 20081216, end: 20090114
  2. TRIAMCINOLONE [Concomitant]
     Indication: PSORIASIS
     Dates: start: 20080909
  3. ETANERCEPT [Concomitant]
     Indication: PSORIASIS
     Dates: start: 20080922, end: 20081216

REACTIONS (3)
  - CARDIAC FAILURE CONGESTIVE [None]
  - PNEUMONIA ASPIRATION [None]
  - SYSTEMIC INFLAMMATORY RESPONSE SYNDROME [None]
